FAERS Safety Report 25264946 (Version 1)
Quarter: 2025Q2

REPORT INFORMATION
  Report Type: Spontaneous
  Country: US (occurrence: US)
  Receive Date: 20250502
  Receipt Date: 20250502
  Transmission Date: 20250717
  Serious: No
  Sender: BIOGEN
  Company Number: US-BIOGEN-2021BI01005987

PATIENT
  Age: 56 Year
  Sex: Female

DRUGS (6)
  1. VUMERITY [Suspect]
     Active Substance: DIROXIMEL FUMARATE
     Indication: Multiple sclerosis
     Route: 050
     Dates: start: 20210412, end: 202104
  2. VUMERITY [Suspect]
     Active Substance: DIROXIMEL FUMARATE
     Route: 050
     Dates: start: 20210419
  3. VUMERITY [Suspect]
     Active Substance: DIROXIMEL FUMARATE
     Route: 050
     Dates: start: 20210426
  4. VUMERITY [Suspect]
     Active Substance: DIROXIMEL FUMARATE
     Route: 050
     Dates: start: 202104
  5. MYRBETRIQ [Concomitant]
     Active Substance: MIRABEGRON
     Indication: Urinary tract disorder
     Route: 050
  6. FAMOTIDINE [Concomitant]
     Active Substance: FAMOTIDINE
     Route: 050

REACTIONS (11)
  - Product dose omission issue [Unknown]
  - Product dose omission in error [Unknown]
  - Central nervous system lesion [Not Recovered/Not Resolved]
  - Full blood count abnormal [Unknown]
  - Fatigue [Unknown]
  - Food poisoning [Recovered/Resolved]
  - Abdominal discomfort [Recovered/Resolved]
  - Nausea [Unknown]
  - Flushing [Unknown]
  - Hot flush [Unknown]
  - Vomiting [Recovered/Resolved]

NARRATIVE: CASE EVENT DATE: 20210401
